FAERS Safety Report 17683535 (Version 2)
Quarter: 2020Q2

REPORT INFORMATION
  Report Type: Report from Study
  Country: CA (occurrence: CA)
  Receive Date: 20200420
  Receipt Date: 20200420
  Transmission Date: 20200714
  Serious: Yes (Other)
  Sender: FDA-Public Use
  Company Number: CA-ORION CORPORATION ORION PHARMA-TREX2020-1798

PATIENT
  Age: 25 Year
  Sex: Female

DRUGS (7)
  1. METHOTREXATE (TRADE NAME UNKNOWN) [Suspect]
     Active Substance: METHOTREXATE
     Route: 058
  2. ENBREL [Concomitant]
     Active Substance: ETANERCEPT
     Route: 065
  3. NAPROXEN. [Concomitant]
     Active Substance: NAPROXEN
     Route: 065
  4. SULFASALAZINE. [Concomitant]
     Active Substance: SULFASALAZINE
     Route: 065
  5. METHOTREXATE (TRADE NAME UNKNOWN) [Suspect]
     Active Substance: METHOTREXATE
     Indication: JUVENILE IDIOPATHIC ARTHRITIS
     Route: 048
  6. CELEBREX [Concomitant]
     Active Substance: CELECOXIB
     Route: 065
  7. IBUPROFEN. [Concomitant]
     Active Substance: IBUPROFEN
     Route: 065

REACTIONS (9)
  - C-reactive protein increased [Unknown]
  - Arthralgia [Unknown]
  - Back pain [Unknown]
  - Discomfort [Unknown]
  - Neck pain [Unknown]
  - Fatigue [Unknown]
  - Musculoskeletal stiffness [Unknown]
  - Joint swelling [Unknown]
  - Psoriatic arthropathy [Unknown]
